FAERS Safety Report 6341507-X (Version None)
Quarter: 2009Q3

REPORT INFORMATION
  Report Type: 
  Country: None (occurrence: None)
  Receive Date: 20090904
  Receipt Date: 20090824
  Transmission Date: 20100115
  Serious: Yes (Hospitalization, Other)
  Sender: FDA-Public Use
  Company Number: US-PFIZER INC-2009249945

PATIENT
  Sex: Male

DRUGS (12)
  1. NARDIL [Suspect]
     Indication: FEAR
     Dosage: 45 MG, 2X/DAY
     Dates: start: 20010101
  2. NORVASC [Concomitant]
  3. KLONOPIN [Concomitant]
  4. ATACAND [Concomitant]
  5. SYNTHROID [Concomitant]
  6. FUROSEMIDE [Concomitant]
  7. SPIRONOLACTONE [Concomitant]
  8. CRESTOR [Concomitant]
  9. DILTIAZEM [Concomitant]
  10. BYETTA [Concomitant]
  11. NIACIN [Concomitant]
  12. VITAMIN B-12 [Concomitant]

REACTIONS (3)
  - CONDITION AGGRAVATED [None]
  - PANIC DISORDER [None]
  - RENAL FAILURE ACUTE [None]
